FAERS Safety Report 5238416-6 (Version None)
Quarter: 2007Q1

REPORT INFORMATION
  Report Type: 
  Country: None (occurrence: None)
  Receive Date: 20070209
  Receipt Date: 20070201
  Transmission Date: 20070707
  Serious: Yes (Death)
  Sender: FDA-Public Use
  Company Number: 2007-00536

PATIENT
  Age: 35 Year

DRUGS (3)
  1. IBUPROFEN [Suspect]
  2. BUPROPION HCL [Suspect]
  3. CHARCOAL, ACTIVATED(CHARCOAL, ACTIVATED) [Suspect]

REACTIONS (1)
  - DEATH [None]
